FAERS Safety Report 6675782-9 (Version None)
Quarter: 2010Q2

REPORT INFORMATION
  Report Type: 
  Country: None (occurrence: None)
  Receive Date: 20100412
  Receipt Date: 20100405
  Transmission Date: 20101027
  Serious: Yes (Hospitalization)
  Sender: FDA-Public Use
  Company Number: US-BIOGENIDEC-2008BI028987

PATIENT
  Age: 44 Year
  Sex: Female
  Weight: 76 kg

DRUGS (8)
  1. TYSABRI [Suspect]
     Indication: MULTIPLE SCLEROSIS
     Route: 042
     Dates: start: 20050228, end: 20050228
  2. TYSABRI [Suspect]
     Route: 042
     Dates: start: 20080121, end: 20081024
  3. TYSABRI [Suspect]
     Route: 042
     Dates: start: 20090619, end: 20090814
  4. XANAX [Concomitant]
     Indication: ANXIETY
     Dates: start: 20050101
  5. HYDROXYZINE [Concomitant]
     Indication: ANXIETY
     Dates: start: 20050101
  6. TOPAMAX [Concomitant]
     Indication: DEPRESSION
     Dates: start: 20030101
  7. CITALOPRAM [Concomitant]
     Indication: DEPRESSION
     Dates: start: 20030101
  8. ZANTAC [Concomitant]
     Indication: GASTROOESOPHAGEAL REFLUX DISEASE
     Dates: start: 20030101

REACTIONS (9)
  - ABDOMINAL PAIN UPPER [None]
  - BORDERLINE PERSONALITY DISORDER [None]
  - CHEST PAIN [None]
  - DYSPNOEA [None]
  - FLUSHING [None]
  - GASTROOESOPHAGEAL REFLUX DISEASE [None]
  - NUCLEAR MAGNETIC RESONANCE IMAGING ABNORMAL [None]
  - PANCREATITIS [None]
  - WEIGHT INCREASED [None]
